FAERS Safety Report 15156755 (Version 1)
Quarter: 2018Q3

REPORT INFORMATION
  Report Type: Spontaneous
  Country: US (occurrence: US)
  Receive Date: 20180717
  Receipt Date: 20180717
  Transmission Date: 20181010
  Serious: Yes (Other)
  Sender: FDA-Public Use
  Company Number: US-SUN PHARMACEUTICAL INDUSTRIES LTD-2018US-177822

PATIENT
  Age: 26 Year
  Sex: Male

DRUGS (1)
  1. CLOZAPINE. [Suspect]
     Active Substance: CLOZAPINE
     Indication: MOVEMENT DISORDER
     Dosage: 100 MG, DAILY
     Route: 065

REACTIONS (6)
  - Rectal haemorrhage [Unknown]
  - Insomnia [Unknown]
  - Weaning failure [Unknown]
  - Gangrene [Unknown]
  - Dysuria [Unknown]
  - Weight increased [Unknown]
